FAERS Safety Report 12873375 (Version 6)
Quarter: 2018Q2

REPORT INFORMATION
  Report Type: Report from Study
  Country: AT (occurrence: AT)
  Receive Date: 20161021
  Receipt Date: 20180411
  Transmission Date: 20180711
  Serious: Yes (Hospitalization, Other)
  Sender: FDA-Public Use
  Company Number: AT-INCYTE CORPORATION-2016IN000326

PATIENT

DRUGS (1)
  1. JAKAVI [Suspect]
     Active Substance: RUXOLITINIB
     Indication: MYELOFIBROSIS
     Dosage: 15 MG, BID
     Route: 048
     Dates: start: 20120306

REACTIONS (11)
  - Joint dislocation [Recovering/Resolving]
  - Respiratory tract infection [Recovered/Resolved]
  - Left ventricular hypertrophy [Unknown]
  - Arthropathy [Recovered/Resolved]
  - Chest pain [Recovered/Resolved]
  - Thrombocytopenia [Recovered/Resolved]
  - Cough [Recovered/Resolved]
  - Ankle fracture [Recovering/Resolving]
  - Pulmonary embolism [Recovered/Resolved]
  - Dyspnoea [Recovered/Resolved]
  - Dyspnoea exertional [Unknown]

NARRATIVE: CASE EVENT DATE: 20120403
